FAERS Safety Report 7232603-3 (Version None)
Quarter: 2011Q1

REPORT INFORMATION
  Report Type: 
  Country: None (occurrence: None)
  Receive Date: 20110119
  Receipt Date: 20110110
  Transmission Date: 20110831
  Serious: Yes (Other)
  Sender: FDA-Public Use
  Company Number: PHHY2010US64111

PATIENT
  Sex: Female

DRUGS (10)
  1. NEURONTIN [Concomitant]
  2. MOTRIN [Concomitant]
  3. BACLOFEN [Concomitant]
  4. EXTAVIA [Suspect]
     Dosage: 0.25 MG, QOD
     Route: 058
  5. METFORMIN HCL [Concomitant]
  6. LIPITOR [Concomitant]
  7. EXTAVIA [Suspect]
     Indication: MULTIPLE SCLEROSIS
     Dosage: 0.125MG, QOD
     Route: 058
     Dates: start: 20100827
  8. TYLENOL [Concomitant]
  9. PROVIGIL [Concomitant]
  10. NEXIUM [Concomitant]

REACTIONS (7)
  - INFLUENZA LIKE ILLNESS [None]
  - PAIN [None]
  - HEADACHE [None]
  - FATIGUE [None]
  - MOTOR DYSFUNCTION [None]
  - DEPRESSION [None]
  - DEPRESSED MOOD [None]
